FAERS Safety Report 4423531-7 (Version None)
Quarter: 2004Q3

REPORT INFORMATION
  Report Type: 
  Country: None (occurrence: None)
  Receive Date: 20040714
  Receipt Date: 20030603
  Transmission Date: 20050211
  Serious: Yes (Hospitalization)
  Sender: FDA-Public Use
  Company Number: 200313930US

PATIENT
  Age: 96 Year
  Sex: Male
  Weight: 74.5 kg

DRUGS (7)
  1. TAXOTERE [Suspect]
     Indication: PROSTATE CANCER
     Dosage: QW
     Dates: start: 20030310, end: 20030310
  2. TAXOTERE [Suspect]
     Indication: PROSTATE CANCER
     Dates: start: 20030317, end: 20030317
  3. TAXOTERE [Suspect]
     Indication: PROSTATE CANCER
     Dates: start: 20030331, end: 20030331
  4. TAXOTERE [Suspect]
     Indication: PROSTATE CANCER
     Dates: start: 20030407, end: 20030407
  5. TAXOTERE [Suspect]
     Indication: PROSTATE CANCER
     Dates: start: 20030421, end: 20030421
  6. TAXOTERE [Suspect]
     Indication: PROSTATE CANCER
     Dates: start: 20030428, end: 20030428
  7. TAXOTERE [Suspect]
     Indication: PROSTATE CANCER
     Dates: start: 20030512, end: 20030512

REACTIONS (1)
  - FLUID RETENTION [None]
